FAERS Safety Report 6757005-5 (Version None)
Quarter: 2010Q2

REPORT INFORMATION
  Report Type: 
  Country: None (occurrence: None)
  Receive Date: 20100604
  Receipt Date: 20100527
  Transmission Date: 20101027
  Serious: Yes (Other)
  Sender: FDA-Public Use
  Company Number: US-ABBOTT-10P-163-0647740-00

PATIENT

DRUGS (2)
  1. HUMIRA [Suspect]
     Indication: RHEUMATOID ARTHRITIS
     Route: 058
     Dates: start: 20100214, end: 20100301
  2. HUMIRA [Suspect]
     Dates: start: 20100401

REACTIONS (3)
  - DRUG INEFFECTIVE [None]
  - NEPHROLITHIASIS [None]
  - RENAL HAEMORRHAGE [None]
